FAERS Safety Report 7763774-8 (Version None)
Quarter: 2011Q3

REPORT INFORMATION
  Report Type: 
  Country: None (occurrence: None)
  Receive Date: 20110919
  Receipt Date: 20110909
  Transmission Date: 20111222
  Serious: Yes (Other)
  Sender: FDA-Public Use
  Company Number: 2011SP042795

PATIENT
  Age: 21 Year
  Sex: Female

DRUGS (2)
  1. DESOGESTREL/ETHUNYL ESTRADIOL [Suspect]
     Indication: PRODUCT USED FOR UNKNOWN INDICATION
  2. OIL-FREE ACNE WASH PINK GRAPEFRUIT FOAMING SCRUB (DERMATOLOGICALS) [Suspect]
     Indication: PRODUCT USED FOR UNKNOWN INDICATION
     Dosage: 1.0 DF;BID;TOP
     Route: 061

REACTIONS (13)
  - APPLICATION SITE BURN [None]
  - APPLICATION SITE SWELLING [None]
  - NAUSEA [None]
  - LYMPH NODE PAIN [None]
  - APPLICATION SITE PRURITUS [None]
  - VOMITING [None]
  - THROAT TIGHTNESS [None]
  - DIARRHOEA [None]
  - DYSPNOEA [None]
  - LYMPHADENOPATHY [None]
  - APPLICATION SITE ERYTHEMA [None]
  - APPLICATION SITE EXFOLIATION [None]
  - APPLICATION SITE RASH [None]
